FAERS Safety Report 11166229 (Version 2)
Quarter: 2015Q2

REPORT INFORMATION
  Report Type: Spontaneous
  Country: BR (occurrence: BR)
  Receive Date: 20150605
  Receipt Date: 20150611
  Transmission Date: 20150821
  Serious: Yes (Other)
  Sender: FDA-Public Use
  Company Number: BR-009507513-1506BRA002201

PATIENT
  Sex: Male

DRUGS (18)
  1. AAS [Concomitant]
     Active Substance: ASPIRIN
     Dosage: UNK
  2. ZYLORIC [Concomitant]
     Active Substance: ALLOPURINOL
     Dosage: UNK
  3. VITAMIN B COMPLEX [Concomitant]
     Active Substance: CYANOCOBALAMIN\DEXPANTHENOL\NIACINAMIDE\PYRIDOXINE HYDROCHLORIDE\RIBOFLAVIN 5^-PHOSPHATE SODIUM\THIAMINE HYDROCHLORIDE\VITAMIN B COMPLEX
     Dosage: UNK
  4. ENDOFOLIN [Concomitant]
     Active Substance: FOLIC ACID
     Dosage: UNK
  5. INVANZ [Suspect]
     Active Substance: ERTAPENEM SODIUM
     Route: 065
  6. UNOPROST (DOXAZOSIN MESYLATE) [Concomitant]
     Dosage: UNK
  7. PANTOZOL [Concomitant]
     Active Substance: PANTOPRAZOLE SODIUM
     Dosage: UNK
  8. LUFTAL [Concomitant]
     Dosage: UNK
  9. SEROQUEL [Concomitant]
     Active Substance: QUETIAPINE FUMARATE
     Dosage: UNK
  10. DIGESAN [Concomitant]
     Active Substance: BROMOPRIDE
     Dosage: UNK
  11. TEGRETOL [Concomitant]
     Active Substance: CARBAMAZEPINE
     Dosage: UNK
  12. CANDICORT (BETAMETHASONE (+) KETOCONAZOLE) [Concomitant]
     Dosage: UNK
  13. DEPURA [Concomitant]
     Active Substance: CHOLECALCIFEROL
     Dosage: UNK
  14. HEMAX (EPOETIN ALFA) [Concomitant]
     Dosage: UNK
  15. LANTUS [Concomitant]
     Active Substance: INSULIN GLARGINE
     Dosage: UNK
  16. IMOSEC [Concomitant]
     Active Substance: LOPERAMIDE
     Dosage: UNK
  17. ZOCOR [Concomitant]
     Active Substance: SIMVASTATIN
     Dosage: UNK
     Route: 048
  18. EPITEZAN [Concomitant]
     Dosage: UNK

REACTIONS (1)
  - Seizure [Recovering/Resolving]

NARRATIVE: CASE EVENT DATE: 20150510
